FAERS Safety Report 6100961-9 (Version None)
Quarter: 2009Q1

REPORT INFORMATION
  Report Type: 
  Country: None (occurrence: None)
  Receive Date: 20090224
  Receipt Date: 20081224
  Transmission Date: 20090719
  Serious: Yes (Hospitalization)
  Sender: FDA-Public Use
  Company Number: WAES 0812GBR00107

PATIENT
  Age: 67 Year
  Sex: Male

DRUGS (10)
  1. TAB LAROPIPRANT (+) NIACIN [Suspect]
     Indication: HIGH DENSITY LIPOPROTEIN DECREASED
     Dosage: 1 GM/DAILY PO
     Route: 048
     Dates: start: 20081208, end: 20081212
  2. ZOCOR [Suspect]
     Indication: HYPERCHOLESTEROLAEMIA
     Dosage: 40 MG/DAILY PO
     Route: 048
     Dates: start: 20081103, end: 20081212
  3. ASPIRIN [Concomitant]
  4. BISOPROLOL [Concomitant]
  5. CIMETIDINE [Concomitant]
  6. DIPYRIDAMOLE [Concomitant]
  7. GLICLAZIDE [Concomitant]
  8. LISINOPRIL [Concomitant]
  9. METFORMIN HCL [Concomitant]
  10. ORLISTAT [Concomitant]

REACTIONS (3)
  - CONFUSIONAL STATE [None]
  - HEMIPARESIS [None]
  - RENAL FAILURE ACUTE [None]
